FAERS Safety Report 8959366 (Version 1)
Quarter: 2012Q4

REPORT INFORMATION
  Report Type: 
  Country: US (occurrence: US)
  Receive Date: 20121211
  Receipt Date: 20121211
  Transmission Date: 20130627
  Serious: Yes (Hospitalization, Other)
  Sender: FDA-Public Use
  Company Number: US-US-EMD SERONO, INC.-7170604

PATIENT
  Age: 54 Year
  Sex: Female
  Weight: 120 kg

DRUGS (2)
  1. REBIF [Suspect]
     Indication: PRODUCT USED FOR UNKNOWN INDICATION
     Route: 058
     Dates: start: 20100806
  2. PLAVIX [Concomitant]
     Indication: CARDIOLIPIN ANTIBODY

REACTIONS (11)
  - Diabetes mellitus [Unknown]
  - Gastric antral vascular ectasia [Unknown]
  - Sinusitis [Unknown]
  - Peroneal nerve palsy [Unknown]
  - Hemiparesis [Unknown]
  - Muscle spasticity [Unknown]
  - Pain in extremity [Unknown]
  - Hepatic enzyme increased [Recovering/Resolving]
  - Anaemia [Not Recovered/Not Resolved]
  - Injection site pain [Unknown]
  - Influenza like illness [Unknown]
